FAERS Safety Report 6057631-5 (Version None)
Quarter: 2009Q1

REPORT INFORMATION
  Report Type: 
  Country: None (occurrence: None)
  Receive Date: 20090129
  Receipt Date: 20080110
  Transmission Date: 20090719
  Serious: No
  Sender: FDA-Public Use
  Company Number: US-BAUSCH-2008BL000107

PATIENT
  Age: 89 Year
  Sex: Female

DRUGS (1)
  1. BACITRACIN OPHTHALMIC OINTMENT [Suspect]
     Route: 047
     Dates: start: 20080109, end: 20080109

REACTIONS (1)
  - EYE PRURITUS [None]
